FAERS Safety Report 24861670 (Version 1)
Quarter: 2025Q1

REPORT INFORMATION
  Report Type: Report from Study
  Country: US (occurrence: US)
  Receive Date: 20250120
  Receipt Date: 20250120
  Transmission Date: 20250409
  Serious: Yes (Life-Threatening, Hospitalization)
  Sender: JOHNSON AND JOHNSON
  Company Number: US-JNJFOC-20241010697

PATIENT
  Age: 73 Year
  Sex: Female
  Weight: 83.91 kg

DRUGS (8)
  1. TREMFYA [Suspect]
     Active Substance: GUSELKUMAB
     Indication: Psoriasis
     Dosage: LAST ADMINISTRATION DATE: JUN-2023
     Route: 058
     Dates: start: 20230920
  2. TREMFYA [Suspect]
     Active Substance: GUSELKUMAB
     Dosage: LAST ADMINISTRATION DATE: JUN-2023
     Dates: start: 20240306, end: 20240817
  3. DOXYCYCLINE HYCLATE [Concomitant]
     Active Substance: DOXYCYCLINE HYCLATE
     Dates: start: 20240124
  4. ESOMEPRAZOLE [Concomitant]
     Active Substance: ESOMEPRAZOLE
     Dates: start: 20240408
  5. BUPROPION HYDROCHLORIDE [Concomitant]
     Active Substance: BUPROPION HYDROCHLORIDE
  6. SEMAGLUTIDE [Concomitant]
     Active Substance: SEMAGLUTIDE
     Dates: start: 20240212
  7. ACYCLOVIR [Concomitant]
     Active Substance: ACYCLOVIR
     Dates: start: 20240327
  8. HEPATITIS A VACCINE;HEPATITIS B VACCINE [Concomitant]
     Dates: start: 20240419

REACTIONS (9)
  - Pulmonary sepsis [Recovering/Resolving]
  - Encephalopathy [Recovering/Resolving]
  - Loss of consciousness [Recovering/Resolving]
  - Pneumothorax [Recovering/Resolving]
  - Atrial fibrillation [Recovering/Resolving]
  - Decreased immune responsiveness [Recovering/Resolving]
  - Viral infection [Recovering/Resolving]
  - Dysstasia [Unknown]
  - Memory impairment [Recovering/Resolving]

NARRATIVE: CASE EVENT DATE: 20240817
